FAERS Safety Report 23934432 (Version 1)
Quarter: 2024Q2

REPORT INFORMATION
  Report Type: Spontaneous
  Country: US (occurrence: None)
  Receive Date: 20240602
  Receipt Date: 20240602
  Transmission Date: 20240716
  Serious: Yes (Death)
  Sender: FDA-Public Use
  Company Number: None

PATIENT
  Age: 34 Year
  Sex: Male
  Weight: 69.75 kg

DRUGS (1)
  1. ISOBUTYL NITRITE [Suspect]
     Active Substance: ISOBUTYL NITRITE

REACTIONS (2)
  - Product advertising issue [None]
  - Intentional product misuse [None]

NARRATIVE: CASE EVENT DATE: 20240511
